FAERS Safety Report 8859407 (Version 1)
Quarter: 2012Q4

REPORT INFORMATION
  Report Type: Report from Study
  Country: US (occurrence: US)
  Receive Date: 20121024
  Receipt Date: 20121024
  Transmission Date: 20130627
  Serious: Yes (Other)
  Sender: FDA-Public Use
  Company Number: US-JNJFOC-20121009557

PATIENT

DRUGS (1)
  1. REMICADE [Suspect]
     Indication: PSORIATIC ARTHROPATHY
     Route: 042

REACTIONS (4)
  - Eye inflammation [Unknown]
  - Temporomandibular joint syndrome [Unknown]
  - Ear disorder [Unknown]
  - Osteitis [Unknown]
